FAERS Safety Report 5146415-8 (Version None)
Quarter: 2006Q4

REPORT INFORMATION
  Report Type: 
  Country: None (occurrence: None)
  Receive Date: 20061102
  Receipt Date: 20061019
  Transmission Date: 20070319
  Serious: Yes (Other)
  Sender: FDA-Public Use
  Company Number: 2006130416

PATIENT
  Sex: Male

DRUGS (1)
  1. CELEBREX [Suspect]
     Indication: BACK INJURY
     Dosage: 200 MG
     Dates: start: 20020101

REACTIONS (4)
  - BLOOD ALKALINE PHOSPHATASE NORMAL [None]
  - BLOOD PRESSURE INCREASED [None]
  - CHEST PAIN [None]
  - THERAPY NON-RESPONDER [None]
